FAERS Safety Report 17083639 (Version 1)
Quarter: 2019Q4

REPORT INFORMATION
  Report Type: Spontaneous
  Country: US (occurrence: US)
  Receive Date: 20191127
  Receipt Date: 20191127
  Transmission Date: 20200122
  Serious: Yes (Hospitalization)
  Sender: FDA-Public Use
  Company Number: US-JNJFOC-20191132325

PATIENT
  Age: 44 Year
  Sex: Female

DRUGS (2)
  1. HUMIRA [Suspect]
     Active Substance: ADALIMUMAB
     Indication: RHEUMATOID ARTHRITIS
     Route: 058
  2. REMICADE [Suspect]
     Active Substance: INFLIXIMAB
     Indication: PRODUCT USED FOR UNKNOWN INDICATION
     Route: 042

REACTIONS (7)
  - White blood cell count abnormal [Recovered/Resolved]
  - Viral infection [Unknown]
  - Haemoptysis [Unknown]
  - Red blood cell count abnormal [Recovered/Resolved]
  - Liver function test abnormal [Recovered/Resolved]
  - Abdominal pain [Recovered/Resolved]
  - Lactic acidosis [Unknown]

NARRATIVE: CASE EVENT DATE: 2019
